FAERS Safety Report 8843411 (Version 2)
Quarter: 2012Q4

REPORT INFORMATION
  Report Type: 
  Country: US (occurrence: US)
  Receive Date: 20121016
  Receipt Date: 20121115
  Transmission Date: 20130627
  Serious: Yes (Other)
  Sender: FDA-Public Use
  Company Number: US-ELI_LILLY_AND_COMPANY-US201210003547

PATIENT
  Age: 67 Year
  Sex: Male

DRUGS (3)
  1. CIALIS [Suspect]
     Indication: ERECTILE DYSFUNCTION
     Dosage: 5 mg, qd
  2. CIALIS [Suspect]
     Dosage: 20 mg, prn
  3. ATENOLOL [Concomitant]
     Dosage: 1 DF, unknown

REACTIONS (2)
  - Visual impairment [Recovered/Resolved]
  - Muscle spasms [Recovered/Resolved]
